FAERS Safety Report 23080817 (Version 1)
Quarter: 2023Q4

REPORT INFORMATION
  Report Type: Spontaneous
  Country: CN (occurrence: CN)
  Receive Date: 20231018
  Receipt Date: 20231018
  Transmission Date: 20240110
  Serious: Yes (Life-Threatening, Hospitalization, Other)
  Sender: FDA-Public Use
  Company Number: CN-BRISTOL-MYERS SQUIBB COMPANY-2023-147465

PATIENT
  Age: 66 Year
  Sex: Male

DRUGS (1)
  1. OPDIVO [Suspect]
     Active Substance: NIVOLUMAB
     Indication: Squamous cell carcinoma of lung
     Route: 041
     Dates: start: 20230807, end: 20230911

REACTIONS (6)
  - Myelosuppression [Recovering/Resolving]
  - Pyrexia [Recovering/Resolving]
  - Sinus tachycardia [Recovering/Resolving]
  - Hypoxia [Recovering/Resolving]
  - Malignant neoplasm progression [Unknown]
  - Off label use [Unknown]

NARRATIVE: CASE EVENT DATE: 20230101
